FAERS Safety Report 4420269-7 (Version None)
Quarter: 2004Q3

REPORT INFORMATION
  Report Type: 
  Country: None (occurrence: None)
  Receive Date: 20040809
  Receipt Date: 20040326
  Transmission Date: 20050211
  Serious: No
  Sender: FDA-Public Use
  Company Number: US-GLAXOSMITHKLINE-A0504843A

PATIENT
  Sex: Male

DRUGS (2)
  1. PAXIL [Suspect]
  2. LEXAPRO [Suspect]

REACTIONS (4)
  - ABDOMINAL PAIN UPPER [None]
  - ANXIETY [None]
  - DYSPNOEA [None]
  - PALPITATIONS [None]
